FAERS Safety Report 5454835-7 (Version None)
Quarter: 2007Q3

REPORT INFORMATION
  Report Type: 
  Country: None (occurrence: None)
  Receive Date: 20070917
  Receipt Date: 20061010
  Transmission Date: 20080115
  Serious: No
  Sender: FDA-Public Use
  Company Number: US-ASTRAZENECA-2006UW17805

PATIENT
  Age: 30 Year
  Sex: Female
  Weight: 58.6 kg

DRUGS (1)
  1. SEROQUEL [Suspect]
     Indication: BIPOLAR DISORDER
     Route: 048

REACTIONS (3)
  - DRUG SCREEN [None]
  - MULTIPLE DRUG OVERDOSE [None]
  - OVERDOSE [None]
